FAERS Safety Report 14861013 (Version 3)
Quarter: 2018Q2

REPORT INFORMATION
  Report Type: Report from Study
  Country: AT (occurrence: AT)
  Receive Date: 20180508
  Receipt Date: 20180523
  Transmission Date: 20180711
  Serious: Yes (Hospitalization)
  Sender: FDA-Public Use
  Company Number: AT-ROCHE-2113999

PATIENT
  Age: 72 Year
  Sex: Female
  Weight: 65.9 kg

DRUGS (73)
  1. INDAPAMID [Concomitant]
     Active Substance: INDAPAMIDE
     Indication: HYPERTENSION
     Route: 065
     Dates: start: 2013
  2. AKYNZEO [Concomitant]
     Active Substance: NETUPITANT\PALONOSETRON HYDROCHLORIDE
     Indication: NAUSEA
     Route: 065
     Dates: start: 20180116, end: 20180116
  3. ULSAL [Concomitant]
     Active Substance: RANITIDINE HYDROCHLORIDE
     Indication: PREMEDICATION
     Dosage: SUPPORTIVE FOR CHEMOTHERAPY
     Route: 065
     Dates: start: 20180206, end: 20180206
  4. ULSAL [Concomitant]
     Active Substance: RANITIDINE HYDROCHLORIDE
     Route: 065
     Dates: start: 20180327, end: 20180327
  5. FORTECORTIN [Concomitant]
     Active Substance: DEXAMETHASONE
     Dosage: SUPPORTIVE FOR CHEMOTHERAPY
     Route: 042
     Dates: start: 20180116, end: 20180116
  6. FORTECORTIN [Concomitant]
     Active Substance: DEXAMETHASONE
     Route: 048
     Dates: start: 20180206, end: 20180210
  7. FORTECORTIN [Concomitant]
     Active Substance: DEXAMETHASONE
     Route: 048
     Dates: start: 20180116, end: 20180120
  8. FORTECORTIN [Concomitant]
     Active Substance: DEXAMETHASONE
     Route: 048
     Dates: start: 20180418, end: 20180420
  9. FORTECORTIN [Concomitant]
     Active Substance: DEXAMETHASONE
     Route: 048
     Dates: start: 20180509, end: 20180512
  10. ARANESP [Concomitant]
     Active Substance: DARBEPOETIN ALFA
     Indication: ANAEMIA
     Route: 065
     Dates: start: 20180215, end: 20180217
  11. ELOZELL SPEZIAL [Concomitant]
     Indication: FATIGUE
     Route: 065
     Dates: start: 20180507, end: 20180507
  12. PASPERTIN (AUSTRIA) [Concomitant]
     Route: 065
     Dates: start: 20180417, end: 20180417
  13. EMEND [Concomitant]
     Active Substance: APREPITANT
     Route: 065
     Dates: start: 20180305, end: 20180307
  14. BLINDED ATEZOLIZUMAB [Suspect]
     Active Substance: ATEZOLIZUMAB
     Indication: MALIGNANT PERITONEAL NEOPLASM
     Dosage: DATE OF MOST RECENT DOSE OF BLINDE ATEZOLIZUMAB PRIOR TO AE ONSET: 06/FEB/2018
     Route: 042
     Dates: start: 20180116
  15. AKYNZEO [Concomitant]
     Active Substance: NETUPITANT\PALONOSETRON HYDROCHLORIDE
     Route: 065
     Dates: start: 20180206, end: 20180206
  16. LOVENOX [Concomitant]
     Active Substance: ENOXAPARIN SODIUM
     Indication: THROMBOSIS PROPHYLAXIS
     Route: 065
     Dates: start: 20180116, end: 20180224
  17. LOVENOX [Concomitant]
     Active Substance: ENOXAPARIN SODIUM
     Indication: EMBOLISM
     Route: 065
     Dates: start: 20180225, end: 20180417
  18. NACL [Concomitant]
     Active Substance: SODIUM CHLORIDE
     Dosage: HYDRATION
     Route: 065
     Dates: start: 20180115, end: 20180115
  19. FERMED (SACCHARATED IRON OXIDE) [Concomitant]
     Route: 065
     Dates: start: 20180328, end: 20180328
  20. FENISTIL (DIMETINDENE MALEATE) [Concomitant]
     Indication: RASH
     Route: 065
     Dates: start: 20180207, end: 20180209
  21. FENISTIL (DIMETINDENE MALEATE) [Concomitant]
     Route: 065
     Dates: start: 20180327, end: 20180327
  22. FENISTIL (DIMETINDENE MALEATE) [Concomitant]
     Route: 065
     Dates: start: 20180417, end: 20180417
  23. DIBONDRIN [Concomitant]
     Active Substance: DIPHENHYDRAMINE HYDROCHLORIDE
     Route: 065
     Dates: start: 20180508, end: 20180508
  24. AMOXICILLIN/CLAVULANIC ACID [Concomitant]
     Active Substance: AMOXICILLIN\CLAVULANIC ACID
     Indication: CYSTITIS
     Route: 065
     Dates: start: 20180215, end: 20180220
  25. NEODOLPASSE [Concomitant]
     Indication: BACK PAIN
     Route: 065
     Dates: start: 20180312, end: 20180312
  26. ELOCON [Concomitant]
     Active Substance: MOMETASONE FUROATE
     Indication: RASH
     Route: 061
     Dates: start: 20180418, end: 20180420
  27. NEULASTA [Concomitant]
     Active Substance: PEGFILGRASTIM
     Dosage: GCSF
     Route: 065
     Dates: start: 20180118, end: 20180118
  28. MONURIL [Concomitant]
     Active Substance: FOSFOMYCIN SODIUM
     Route: 065
     Dates: start: 20180225, end: 20180225
  29. FERMED (SACCHARATED IRON OXIDE) [Concomitant]
     Route: 065
     Dates: start: 20180507, end: 20180507
  30. DIBONDRIN [Concomitant]
     Active Substance: DIPHENHYDRAMINE HYDROCHLORIDE
     Route: 065
     Dates: start: 20180305, end: 20180305
  31. DIBONDRIN [Concomitant]
     Active Substance: DIPHENHYDRAMINE HYDROCHLORIDE
     Route: 065
     Dates: start: 20180417, end: 20180417
  32. FORTECORTIN [Concomitant]
     Active Substance: DEXAMETHASONE
     Route: 042
     Dates: start: 20180508, end: 20180508
  33. ARANESP [Concomitant]
     Active Substance: DARBEPOETIN ALFA
     Route: 065
     Dates: start: 20180507, end: 20180508
  34. ZARZIO [Concomitant]
     Active Substance: FILGRASTIM
     Route: 065
     Dates: start: 20180503, end: 20180504
  35. ELOZELL SPEZIAL [Concomitant]
     Indication: HYPOKALAEMIA
     Route: 065
     Dates: start: 20180218, end: 20180218
  36. ALOXI [Concomitant]
     Active Substance: PALONOSETRON HYDROCHLORIDE
     Indication: PREMEDICATION
     Route: 065
     Dates: start: 20180305, end: 20180305
  37. PASPERTIN (AUSTRIA) [Concomitant]
     Indication: PREMEDICATION
     Route: 065
     Dates: start: 20180305, end: 20180305
  38. XYZALL [Concomitant]
     Active Substance: LEVOCETIRIZINE DIHYDROCHLORIDE
     Indication: RASH
     Route: 065
     Dates: start: 20180327
  39. NEULASTA [Concomitant]
     Active Substance: PEGFILGRASTIM
     Route: 065
     Dates: start: 20180510, end: 20180510
  40. NACL [Concomitant]
     Active Substance: SODIUM CHLORIDE
     Route: 065
     Dates: start: 20180129, end: 20180129
  41. FERMED (SACCHARATED IRON OXIDE) [Concomitant]
     Indication: ANAEMIA
     Route: 065
     Dates: start: 20180207, end: 20180207
  42. ULSAL [Concomitant]
     Active Substance: RANITIDINE HYDROCHLORIDE
     Route: 065
     Dates: start: 20180116, end: 20180116
  43. ULSAL [Concomitant]
     Active Substance: RANITIDINE HYDROCHLORIDE
     Route: 065
     Dates: start: 20180305, end: 20180305
  44. FORTECORTIN [Concomitant]
     Active Substance: DEXAMETHASONE
     Route: 042
     Dates: start: 20180327, end: 20180327
  45. PASPERTIN (AUSTRIA) [Concomitant]
     Route: 065
     Dates: start: 20180307, end: 20180312
  46. TRITACE [Concomitant]
     Active Substance: RAMIPRIL
     Indication: HYPERTENSION
     Route: 065
     Dates: start: 2013
  47. AKYNZEO [Concomitant]
     Active Substance: NETUPITANT\PALONOSETRON HYDROCHLORIDE
     Route: 065
     Dates: start: 20180508, end: 20180508
  48. NORVASC [Concomitant]
     Active Substance: AMLODIPINE BESYLATE
     Indication: HYPERTENSION
     Route: 065
     Dates: start: 20180116, end: 20180116
  49. DIBONDRIN [Concomitant]
     Active Substance: DIPHENHYDRAMINE HYDROCHLORIDE
     Route: 065
     Dates: start: 20180206, end: 20180206
  50. GUTTALAX [Concomitant]
     Indication: CONSTIPATION
     Route: 065
     Dates: start: 20180117
  51. ULSAL [Concomitant]
     Active Substance: RANITIDINE HYDROCHLORIDE
     Route: 065
     Dates: start: 20180417, end: 20180417
  52. FORTECORTIN [Concomitant]
     Active Substance: DEXAMETHASONE
     Dosage: SUPPORTIVE FOR CHEMOTHERAPY
     Route: 042
     Dates: start: 20180206, end: 20180206
  53. EMEND [Concomitant]
     Active Substance: APREPITANT
     Route: 065
     Dates: start: 20180417, end: 20180419
  54. BEVACIZUMAB. [Suspect]
     Active Substance: BEVACIZUMAB
     Indication: MALIGNANT PERITONEAL NEOPLASM
     Dosage: DATE OF MOST RECENT DOSE OF BEVACIZUMAB PRIOR TO AE ONSET: 06/FEB/2018
     Route: 042
     Dates: start: 20180206
  55. CARBOPLATIN. [Suspect]
     Active Substance: CARBOPLATIN
     Indication: MALIGNANT PERITONEAL NEOPLASM
     Dosage: TO ACHIEVE A TARGET AREA UNDER THE CURVE (AUC) OF 6 MILLIGRAMS PER MILLILITER*MINUTE (MG/ML*MIN)?DAT
     Route: 042
     Dates: start: 20180116
  56. CONCOR [Concomitant]
     Active Substance: BISOPROLOL FUMARATE
     Indication: HYPERTENSION
     Route: 065
     Dates: end: 201712
  57. DIAMICRON [Concomitant]
     Active Substance: GLICLAZIDE
     Indication: TYPE 2 DIABETES MELLITUS
     Route: 065
     Dates: start: 20180117
  58. LOVENOX [Concomitant]
     Active Substance: ENOXAPARIN SODIUM
     Route: 065
     Dates: start: 20180418
  59. FORTECORTIN [Concomitant]
     Active Substance: DEXAMETHASONE
     Route: 042
     Dates: start: 20180417, end: 20180417
  60. ZARZIO [Concomitant]
     Active Substance: FILGRASTIM
     Indication: WHITE BLOOD CELL COUNT DECREASED
     Route: 065
     Dates: start: 20180216, end: 20180218
  61. NOVALGIN (AUSTRIA) [Concomitant]
     Indication: BACK PAIN
     Route: 065
     Dates: start: 20180312, end: 20180312
  62. KCL-RETARD [Concomitant]
     Active Substance: POTASSIUM CHLORIDE
     Indication: HYPOKALAEMIA
     Route: 065
     Dates: start: 20180508
  63. NACL [Concomitant]
     Active Substance: SODIUM CHLORIDE
     Route: 065
     Dates: start: 20180312, end: 20180312
  64. MONURIL [Concomitant]
     Active Substance: FOSFOMYCIN SODIUM
     Indication: CYSTITIS
     Route: 065
     Dates: start: 20180205, end: 20180205
  65. FERMED (SACCHARATED IRON OXIDE) [Concomitant]
     Route: 065
     Dates: start: 20180215, end: 20180215
  66. ULSAL [Concomitant]
     Active Substance: RANITIDINE HYDROCHLORIDE
     Route: 065
     Dates: start: 20180508, end: 20180508
  67. ARANESP [Concomitant]
     Active Substance: DARBEPOETIN ALFA
     Route: 065
     Dates: start: 20180327, end: 20180327
  68. PASPERTIN (AUSTRIA) [Concomitant]
     Route: 065
     Dates: start: 20180327, end: 20180402
  69. EMEND [Concomitant]
     Active Substance: APREPITANT
     Route: 065
     Dates: start: 20180327, end: 20180329
  70. FURADANTIN RETARD [Concomitant]
     Indication: CYSTITIS
     Route: 065
     Dates: start: 20180326, end: 20180331
  71. PACLITAXEL. [Suspect]
     Active Substance: PACLITAXEL
     Indication: MALIGNANT PERITONEAL NEOPLASM
     Dosage: DATE OF MOST RECENT DOSE (292.13 MG) OF PACLITAXEL PRIORTO AE ONSET: 17/APR/2018
     Route: 042
     Dates: start: 20180116
  72. DIBONDRIN [Concomitant]
     Active Substance: DIPHENHYDRAMINE HYDROCHLORIDE
     Indication: PREMEDICATION
     Dosage: SUPPORTIVE FOR CHEMOTHERAPY
     Route: 065
     Dates: start: 20180116, end: 20180116
  73. DIBONDRIN [Concomitant]
     Active Substance: DIPHENHYDRAMINE HYDROCHLORIDE
     Route: 065
     Dates: start: 20180327, end: 20180327

REACTIONS (1)
  - Epilepsy [Not Recovered/Not Resolved]

NARRATIVE: CASE EVENT DATE: 20180121
